FAERS Safety Report 10417178 (Version 4)
Quarter: 2014Q3

REPORT INFORMATION
  Report Type: Spontaneous
  Country: US (occurrence: US)
  Receive Date: 20140828
  Receipt Date: 20140919
  Transmission Date: 20150326
  Serious: Yes (Other)
  Sender: FDA-Public Use
  Company Number: US-ACTELION-A-US2014-104404

PATIENT
  Age: 63 Year
  Sex: Female

DRUGS (8)
  1. OPSUMIT [Suspect]
     Active Substance: MACITENTAN
     Indication: PULMONARY ARTERIAL HYPERTENSION
     Dosage: 10 MG, QD
     Route: 048
     Dates: start: 20140429
  2. VENTAVIS [Suspect]
     Active Substance: ILOPROST
     Indication: PULMONARY ARTERIAL HYPERTENSION
     Dosage: 5 MCG, 6-9X/DAY
     Route: 055
  3. COUMADIN [Concomitant]
     Active Substance: WARFARIN SODIUM
  4. LEVEMIR [Concomitant]
     Active Substance: INSULIN DETEMIR
  5. HUMALOG [Concomitant]
     Active Substance: INSULIN LISPRO
  6. REVATIO [Concomitant]
     Active Substance: SILDENAFIL CITRATE
  7. PREDNISONE. [Concomitant]
     Active Substance: PREDNISONE
  8. VENTAVIS [Suspect]
     Active Substance: ILOPROST
     Dosage: 2.5 MCG, 6-9X/DAY
     Route: 055
     Dates: start: 20140722

REACTIONS (9)
  - Blood glucose increased [Unknown]
  - Pruritus [Unknown]
  - Swelling face [Unknown]
  - Urinary tract infection [Unknown]
  - Oedema peripheral [Unknown]
  - Swelling [Unknown]
  - Chromaturia [Unknown]
  - Hypersensitivity [Unknown]
  - Fatigue [Unknown]
